FAERS Safety Report 11309374 (Version 5)
Quarter: 2016Q1

REPORT INFORMATION
  Report Type: Spontaneous
  Country: US (occurrence: US)
  Receive Date: 20150724
  Receipt Date: 20160211
  Transmission Date: 20160525
  Serious: Yes (Hospitalization, Other)
  Sender: FDA-Public Use
  Company Number: US-ABBVIE-15P-163-1430469-00

PATIENT
  Sex: Male

DRUGS (2)
  1. HUMIRA [Suspect]
     Active Substance: ADALIMUMAB
     Indication: RHEUMATOID ARTHRITIS
     Route: 058
  2. HUMIRA [Suspect]
     Active Substance: ADALIMUMAB
     Indication: COLITIS ULCERATIVE

REACTIONS (10)
  - Generalised tonic-clonic seizure [Unknown]
  - Multiple injuries [Unknown]
  - Nervous system disorder [Unknown]
  - Impaired driving ability [Unknown]
  - Spinal pain [Unknown]
  - Concussion [Unknown]
  - Rib fracture [Unknown]
  - Hip fracture [Unknown]
  - Feeling abnormal [Unknown]
  - Colitis ulcerative [Unknown]
